FAERS Safety Report 6690754-6 (Version None)
Quarter: 2010Q2

REPORT INFORMATION
  Report Type: 
  Country: None (occurrence: None)
  Receive Date: 20100421
  Receipt Date: 20100409
  Transmission Date: 20101027
  Serious: Yes (Other)
  Sender: FDA-Public Use
  Company Number: GB-PFIZER INC-2010044906

PATIENT
  Age: 69 Year
  Sex: Female
  Weight: 58.5 kg

DRUGS (2)
  1. LATANOPROST [Suspect]
     Dosage: UNK
     Route: 047
     Dates: start: 20090828, end: 20091113
  2. ADIZEM-XL [Concomitant]
     Indication: HYPERTENSION
     Dosage: UNK
     Route: 048
     Dates: start: 20060101

REACTIONS (2)
  - DYSPHAGIA [None]
  - GLOSSODYNIA [None]
